FAERS Safety Report 5934608-9 (Version None)
Quarter: 2008Q4

REPORT INFORMATION
  Report Type: 
  Country: None (occurrence: None)
  Receive Date: 20081029
  Receipt Date: 20081017
  Transmission Date: 20090506
  Serious: Yes (Hospitalization)
  Sender: FDA-Public Use
  Company Number: FR-PFIZER INC-2008088106

PATIENT
  Sex: Male

DRUGS (2)
  1. LYRICA [Suspect]
     Indication: ANXIETY
     Route: 048
     Dates: start: 20080529, end: 20080614
  2. RIVASTIGMINE TARTRATE [Concomitant]

REACTIONS (3)
  - AKATHISIA [None]
  - CLONUS [None]
  - FALL [None]
